FAERS Safety Report 14078213 (Version 1)
Quarter: 2017Q4

REPORT INFORMATION
  Report Type: Spontaneous
  Country: US (occurrence: US)
  Receive Date: 20171012
  Receipt Date: 20171012
  Transmission Date: 20180321
  Serious: No
  Sender: FDA-Public Use
  Company Number: US-MYLANLABS-2017M1018081

PATIENT
  Age: 51 Year
  Sex: Female

DRUGS (2)
  1. CLOZAPINE MYLAN [Suspect]
     Active Substance: CLOZAPINE
     Dosage: 1200 MG, QD
     Route: 048
     Dates: start: 20170319
  2. CLOZAPINE MYLAN [Suspect]
     Active Substance: CLOZAPINE
     Indication: PRODUCT USED FOR UNKNOWN INDICATION
     Dosage: 600 MG, QD
     Route: 048

REACTIONS (1)
  - Overdose [Unknown]

NARRATIVE: CASE EVENT DATE: 20170319
